FAERS Safety Report 15981714 (Version 1)
Quarter: 2019Q1

REPORT INFORMATION
  Report Type: Report from Study
  Country: NL (occurrence: NL)
  Receive Date: 20190219
  Receipt Date: 20190219
  Transmission Date: 20190418
  Serious: Yes (Other)
  Sender: FDA-Public Use
  Company Number: NL-TEVA-2019-NL-1013361

PATIENT
  Age: 59 Year
  Sex: Female

DRUGS (6)
  1. METHOTREXATE (METHOTREXATE SODIUM) [Suspect]
     Active Substance: METHOTREXATE SODIUM
     Indication: PSORIATIC ARTHROPATHY
     Dosage: 5MG  IN 1 WEEK
     Route: 065
     Dates: start: 20160706, end: 20181123
  2. METFORMINE [Concomitant]
     Active Substance: METFORMIN HYDROCHLORIDE
     Dosage: 1000MG, 2X/D
  3. OXAZEPAM. [Concomitant]
     Dosage: MG, ZN
  4. HYDROCHLOORTHIAZIDE. [Concomitant]
     Dosage: MG, ACCORDING TO SCHEDULE
  5. FOLIUMZUUR [Concomitant]
     Active Substance: FOLIC ACID
     Dosage: 5MG, ACCORDING TO SCHEDULE
     Dates: start: 20160706, end: 20181123
  6. BISOPROLOL. [Concomitant]
     Dosage: MG, ACCORDING TO SCHEDULE

REACTIONS (2)
  - Portal vein thrombosis [Unknown]
  - Liver function test abnormal [Unknown]

NARRATIVE: CASE EVENT DATE: 20180419
